FAERS Safety Report 7177699-2 (Version None)
Quarter: 2010Q4

REPORT INFORMATION
  Report Type: 
  Country: None (occurrence: None)
  Receive Date: 20101123
  Receipt Date: 20100802
  Transmission Date: 20110411
  Serious: No
  Sender: FDA-Public Use
  Company Number: 016545

PATIENT
  Sex: Male
  Weight: 95.2554 kg

DRUGS (12)
  1. CIMZIA [Suspect]
     Indication: CROHN'S DISEASE
     Dosage: (400 MG 1X/2 WEEKS SUBCUTANEOUS)
     Route: 058
     Dates: start: 20100501
  2. MERCAPTOPURINE [Concomitant]
  3. AMLODIPINE BESYLATE [Concomitant]
  4. ASACOL [Concomitant]
  5. CARDURA /00639301/ [Concomitant]
  6. FINASTERIDE [Concomitant]
  7. DISOPYRAMIDE PHOSPHATE [Concomitant]
  8. LISINOPRIL [Concomitant]
  9. NASONEX [Concomitant]
  10. ALBUTEROL SULFATE [Concomitant]
  11. WARFARIN [Concomitant]
  12. BENADRYL /00945501/ [Concomitant]

REACTIONS (4)
  - ABDOMINAL PAIN [None]
  - DIARRHOEA [None]
  - ECZEMA [None]
  - INJECTION SITE ERYTHEMA [None]
